FAERS Safety Report 9942600 (Version 1)
Quarter: 2014Q1

REPORT INFORMATION
  Report Type: Report from Study
  Country: US (occurrence: US)
  Receive Date: 20140303
  Receipt Date: 20140303
  Transmission Date: 20141002
  Serious: No
  Sender: FDA-Public Use
  Company Number: US-ABBVIE-13P-163-1045297-00

PATIENT
  Age: 48 Year
  Sex: Male

DRUGS (7)
  1. HUMIRA [Suspect]
     Indication: PSORIATIC ARTHROPATHY
     Route: 058
     Dates: start: 20121219
  2. ATENOLOL [Concomitant]
     Indication: HYPERTENSION
     Dosage: DAILY
  3. ENALAPRIL [Concomitant]
     Indication: HYPERTENSION
     Dosage: DAILY
  4. LITHIUM [Concomitant]
     Indication: BIPOLAR DISORDER
  5. MS CONTIN [Concomitant]
     Indication: PAIN
  6. VICODIN [Concomitant]
     Indication: PAIN
  7. METHOTREXATE [Concomitant]
     Indication: PSORIATIC ARTHROPATHY
     Dosage: WEEKLY

REACTIONS (5)
  - Malaise [Recovering/Resolving]
  - Bronchial irritation [Recovered/Resolved]
  - Drug dose omission [Unknown]
  - Injection site urticaria [Recovered/Resolved]
  - Device malfunction [Unknown]
